APPROVED DRUG PRODUCT: FLUDEOXYGLUCOSE F18
Active Ingredient: FLUDEOXYGLUCOSE F-18
Strength: 10-100mCi/ML
Dosage Form/Route: INJECTABLE;INTRAVENOUS
Application: A203942 | Product #001 | TE Code: AP
Applicant: KREITCHMAN PET CENTER
Approved: Apr 11, 2016 | RLD: No | RS: No | Type: RX